FAERS Safety Report 6899680-0 (Version None)
Quarter: 2010Q3

REPORT INFORMATION
  Report Type: 
  Country: None (occurrence: None)
  Receive Date: 20100728
  Receipt Date: 20100728
  Transmission Date: 20110219
  Serious: Yes (Hospitalization)
  Sender: FDA-Public Use
  Company Number: None

PATIENT
  Age: 77 Year
  Sex: Male
  Weight: 72.5755 kg

DRUGS (10)
  1. AVASTIN [Suspect]
     Indication: NON-SMALL CELL LUNG CANCER
     Dosage: 5 MG D-14 + D1 Q21 D
     Dates: start: 20091230, end: 20100714
  2. ABRAXANE [Suspect]
     Indication: NON-SMALL CELL LUNG CANCER
     Dosage: 100 MG D1, 8 + 15
     Dates: start: 20100113, end: 20100331
  3. CARBOPLATIN [Suspect]
     Indication: NON-SMALL CELL LUNG CANCER
     Dosage: D1 Q 21 DAYS
     Dates: start: 20100113, end: 20100331
  4. OXYCONTIN [Concomitant]
  5. TYLENOL [Concomitant]
  6. MULTI-VITAMIN [Concomitant]
  7. LORAZEPAM [Concomitant]
  8. LACTULOSE [Concomitant]
  9. KAYEXALATE [Concomitant]
  10. CALCIUM + D [Concomitant]

REACTIONS (7)
  - BLOOD SODIUM DECREASED [None]
  - DEHYDRATION [None]
  - DIARRHOEA [None]
  - GASTROENTERITIS [None]
  - NAUSEA [None]
  - URINARY RETENTION [None]
  - VOMITING [None]
